FAERS Safety Report 10260909 (Version 1)
Quarter: 2014Q2

REPORT INFORMATION
  Report Type: Report from Study
  Country: CA (occurrence: CA)
  Receive Date: 20140626
  Receipt Date: 20140626
  Transmission Date: 20141212
  Serious: Yes (Hospitalization)
  Sender: FDA-Public Use
  Company Number: CA-ALEXION PHARMACEUTICALS INC.-A201402411

PATIENT
  Sex: 0

DRUGS (4)
  1. SOLIRIS [Suspect]
     Indication: ACTIVATED PARTIAL THROMBOPLASTIN TIME ABNORMAL
     Dosage: 900 MG, QW
     Route: 042
     Dates: start: 20140218, end: 20140311
  2. SOLIRIS [Suspect]
     Indication: OFF LABEL USE
     Dosage: 1200 MG, Q2W
     Route: 042
     Dates: start: 20140318, end: 20140513
  3. SOLIRIS [Suspect]
     Dosage: UNK
  4. RITUXIMAB [Concomitant]
     Indication: PRODUCT USED FOR UNKNOWN INDICATION
     Dosage: UNK, 3 DOSES
     Route: 065
     Dates: start: 201312

REACTIONS (3)
  - Thrombotic thrombocytopenic purpura [Not Recovered/Not Resolved]
  - Therapeutic product ineffective for unapproved indication [Unknown]
  - Off label use [Unknown]
